FAERS Safety Report 18890305 (Version 1)
Quarter: 2021Q1

REPORT INFORMATION
  Report Type: Report from Study
  Country: US (occurrence: US)
  Receive Date: 20210214
  Receipt Date: 20210214
  Transmission Date: 20210420
  Serious: Yes (Hospitalization)
  Sender: FDA-Public Use
  Company Number: US-TEVA-2021-US-1877262

PATIENT
  Age: 81 Year
  Sex: Male

DRUGS (1)
  1. NOREPINEPHRINE. [Suspect]
     Active Substance: NOREPINEPHRINE
     Indication: NEUROGENIC SHOCK
     Route: 065

REACTIONS (1)
  - Peripheral ischaemia [Recovered/Resolved]
